FAERS Safety Report 9898788 (Version 1)
Quarter: 2014Q1

REPORT INFORMATION
  Report Type: Spontaneous
  Country: US (occurrence: US)
  Receive Date: 20140214
  Receipt Date: 20140214
  Transmission Date: 20141002
  Serious: No
  Sender: FDA-Public Use
  Company Number: US-GILEAD-2011-0047321

PATIENT
  Age: 59 Year
  Sex: Male

DRUGS (2)
  1. LETAIRIS [Suspect]
     Indication: PRODUCT USED FOR UNKNOWN INDICATION
     Dosage: 10 MG, UNK
     Route: 048
     Dates: start: 20110328
  2. TYVASO [Concomitant]

REACTIONS (8)
  - Gout [Unknown]
  - Hypotension [Unknown]
  - Dizziness [Unknown]
  - Chest discomfort [Unknown]
  - Chest pain [Unknown]
  - Insomnia [Unknown]
  - Throat irritation [Unknown]
  - Oedema [Unknown]
